FAERS Safety Report 8999450 (Version 4)
Quarter: 2013Q4

REPORT INFORMATION
  Report Type: Report from Study
  Country: FI (occurrence: FI)
  Receive Date: 20130103
  Receipt Date: 20131007
  Transmission Date: 20140711
  Serious: Yes (Hospitalization)
  Sender: FDA-Public Use
  Company Number: FI-ROCHE-1173175

PATIENT
  Age: 61 Year
  Sex: Female

DRUGS (13)
  1. TRASTUZUMAB [Suspect]
     Indication: BREAST CANCER
     Dosage: DATE OF LAST DOSE PRIOR TO SAE: 13 DEC 2012
     Route: 065
     Dates: start: 20121213
  2. PERTUZUMAB [Suspect]
     Indication: BREAST CANCER
     Dosage: DATE OF LAST DOSE PRIOR TO SAE: 13 DEC 2012
     Route: 065
     Dates: start: 20121213
  3. DOCETAXEL [Suspect]
     Indication: BREAST CANCER
     Dosage: DATE OF LAST DOSE PRIOR TO SAE: 13 DEC 2012
     Route: 065
     Dates: start: 20121213
  4. DOCETAXEL [Suspect]
     Dosage: DOSE REUCED
     Route: 065
     Dates: start: 20130103
  5. ASACOL [Concomitant]
     Dosage: 800 MGX2-3
     Route: 048
     Dates: start: 20000101
  6. ASACOL [Concomitant]
     Route: 065
     Dates: start: 20130701
  7. ARCOXIA [Concomitant]
     Route: 048
     Dates: start: 20120601
  8. PANADOL FORTE [Concomitant]
     Dosage: 1G X 1-3 AS NEEDED
     Route: 065
     Dates: start: 20120601
  9. PANADOL FORTE [Concomitant]
     Dosage: ONCE BEFORE EVERY I.V. CHEMOTHERAPY,3 WEEKLY
     Route: 048
     Dates: start: 20121213
  10. DEXAMETHASONE [Concomitant]
     Dosage: FOR 4 DAYS IN EVERY CYCLE (BEGINNING THE DAY BEFORE THE DAY 1), 3 WEEKLY
     Route: 048
     Dates: start: 20121212
  11. NEULASTA [Concomitant]
     Dosage: EVERY 3 WEEKLY (ON A DAY2).
     Route: 058
     Dates: start: 20121214
  12. CETIRIZIN [Concomitant]
     Dosage: ONCE BEFORE EVERY I.V. CHEMOTHERAPY, 3 WEEKLY
     Route: 048
     Dates: start: 20121213
  13. PREDNISOLON [Concomitant]
     Dosage: 5 MG 6*1 FOR 1 WEEK THEN 5*1 FOR 2 WEEKS AND THEN 4* 1 FOR 3 WEEKS.
     Route: 065
     Dates: start: 20130718

REACTIONS (1)
  - Neutropenic infection [Recovered/Resolved]
